FAERS Safety Report 22088710 (Version 1)
Quarter: 2023Q1

REPORT INFORMATION
  Report Type: Spontaneous
  Country: PL (occurrence: PL)
  Receive Date: 20230313
  Receipt Date: 20230313
  Transmission Date: 20230418
  Serious: Yes (Hospitalization, Other)
  Sender: FDA-Public Use
  Company Number: PL-MYLANLABS-2023M1021490

PATIENT
  Age: 64 Year
  Sex: Female

DRUGS (7)
  1. METOPROLOL [Interacting]
     Active Substance: METOPROLOL
     Indication: Atrial fibrillation
     Dosage: 100 MILLIGRAM, ONCE A DAY (100 MILLIGRAM, QD)
     Route: 065
  2. PAROXETINE [Interacting]
     Active Substance: PAROXETINE
     Indication: Depression
     Dosage: 20 MILLIGRAM, ONCE A DAY (20 MILLIGRAM, QD)
     Route: 065
  3. RIVAROXABAN [Suspect]
     Active Substance: RIVAROXABAN
     Indication: Product used for unknown indication
     Dosage: 20 MILLIGRAM, ONCE A DAY (20 MILLIGRAM, QD)
     Route: 065
  4. ZOLPIDEM [Suspect]
     Active Substance: ZOLPIDEM TARTRATE
     Indication: Sleep disorder
     Dosage: 10 MILLIGRAM, ONCE A DAY (10 MILLIGRAM, QD)
     Route: 065
  5. DOXYLAMINE [Interacting]
     Active Substance: DOXYLAMINE
     Indication: Depression
     Dosage: 25 MILLIGRAM, ONCE A DAY (25 MILLIGRAM, QD)
     Route: 065
  6. LOSEC [Interacting]
     Active Substance: OMEPRAZOLE
     Indication: Atrial fibrillation
     Dosage: 40 MILLIGRAM, ONCE A DAY (40 MILLIGRAM, QD)
     Route: 065
  7. PROPAFENONE [Interacting]
     Active Substance: PROPAFENONE
     Indication: Atrial fibrillation
     Dosage: 450 MILLIGRAM, ONCE A DAY (450 MILLIGRAM, QD)
     Route: 065

REACTIONS (9)
  - Acute kidney injury [Unknown]
  - Rhabdomyolysis [Unknown]
  - Blood creatine phosphokinase increased [Unknown]
  - Myalgia [Unknown]
  - Drug interaction [Unknown]
  - Chromaturia [Unknown]
  - Sleep disorder [Unknown]
  - Abnormal dreams [Unknown]
  - Medication error [Unknown]
